FAERS Safety Report 21429371 (Version 1)
Quarter: 2022Q4

REPORT INFORMATION
  Report Type: Report from Study
  Country: ES (occurrence: ES)
  Receive Date: 20221009
  Receipt Date: 20221009
  Transmission Date: 20230112
  Serious: Yes (Hospitalization)
  Sender: FDA-Public Use
  Company Number: None

PATIENT
  Age: 85 Year
  Sex: Male

DRUGS (9)
  1. ZOLEDRONIC ACID [Suspect]
     Active Substance: ZOLEDRONIC ACID
     Indication: Hypercalcaemia of malignancy
     Dosage: ZOLEDRONIC ACID (1251A)
     Route: 065
     Dates: start: 20191008, end: 20211203
  2. FUROSEMIDE [Concomitant]
     Active Substance: FUROSEMIDE
     Indication: Product used for unknown indication
     Dosage: FUROSEMIDE CINFA 40 MG TABLETS EFG, 30 TABLETS
     Dates: start: 20200818
  3. DOXAZOSIN MESYLATE [Concomitant]
     Active Substance: DOXAZOSIN MESYLATE
     Indication: Product used for unknown indication
     Dosage: 28 TABLETS
     Dates: start: 20180625
  4. VALSARTAN/HYDROCHLOROTHIAZIDE CINFA [Concomitant]
     Indication: Product used for unknown indication
     Dosage: VALSARTAN/HYDROCHLOROTHIAZIDE CINFA 160 MG/25 MG FILM-COATED TABLETS EFG, 28 TABLETS
     Dates: start: 20180625
  5. REPAGLINIDE CINFA [Concomitant]
     Indication: Product used for unknown indication
     Dosage: REPAGLINIDE CINFA 1 MG TABLETS EFG, 90 TABLETS
     Dates: start: 20170116
  6. METFORMIN CINFA [Concomitant]
     Indication: Product used for unknown indication
     Dosage: METFORMIN CINFA 850 MG FILM-COATED TABLETS EFG, 50 TABLETS
     Dates: start: 20170116
  7. OMEPRAZOLE CINFAMED [Concomitant]
     Indication: Product used for unknown indication
     Dosage: OMEPRAZOLE CINFAMED 20 MG HARD GASTRO-RESISTANT CAPSULES EFG, 28 CAPSULES
     Dates: start: 20190709
  8. CALCIFEDIOL [Concomitant]
     Active Substance: CALCIFEDIOL
     Indication: Product used for unknown indication
     Dosage: 10 DRINKABLE AMPOULES OF 1.5 ML
     Dates: start: 20191105
  9. CALCIUM CARBONATE\CHOLECALCIFEROL [Concomitant]
     Active Substance: CALCIUM CARBONATE\CHOLECALCIFEROL
     Indication: Product used for unknown indication
     Dosage: IDEOS UNIDIA 1000 MG/880 IU, 30 SACHETS
     Dates: start: 20191105

REACTIONS (2)
  - Ludwig angina [Recovered/Resolved]
  - Osteonecrosis of jaw [Unknown]

NARRATIVE: CASE EVENT DATE: 20220101
